FAERS Safety Report 9931041 (Version 3)
Quarter: 2014Q2

REPORT INFORMATION
  Report Type: Report from Study
  Country: US (occurrence: US)
  Receive Date: 20140227
  Receipt Date: 20140422
  Transmission Date: 20141212
  Serious: No
  Sender: FDA-Public Use
  Company Number: PHEH2014US002862

PATIENT
  Age: 68 Year
  Sex: Female

DRUGS (13)
  1. TASIGNA [Suspect]
     Indication: CHRONIC MYELOID LEUKAEMIA
     Dosage: 300 MG, BID
     Route: 048
     Dates: start: 20140128
  2. ASA [Concomitant]
  3. GABAPENTIN [Concomitant]
  4. PRAVACHOL [Concomitant]
  5. FUROSEMIDE [Concomitant]
  6. METFORMIN [Concomitant]
  7. GLIMEPIRIDE [Concomitant]
  8. LOSARTAN [Concomitant]
  9. SYNTHROID [Concomitant]
  10. BUSPIRONE [Concomitant]
  11. VITAMIN D [Concomitant]
  12. FOLIC ACID [Concomitant]
  13. MAGNESIUM [Concomitant]

REACTIONS (4)
  - Blood glucose increased [Not Recovered/Not Resolved]
  - Abdominal discomfort [Not Recovered/Not Resolved]
  - Fatigue [Not Recovered/Not Resolved]
  - Alopecia [Unknown]
